FAERS Safety Report 5530414-8 (Version None)
Quarter: 2007Q4

REPORT INFORMATION
  Report Type: 
  Country: None (occurrence: None)
  Receive Date: 20071127
  Receipt Date: 20071113
  Transmission Date: 20080405
  Serious: Yes (Death, Other)
  Sender: FDA-Public Use
  Company Number: 162353ISR

PATIENT
  Age: 59 Year
  Sex: Female

DRUGS (5)
  1. CITALOPRAM [Suspect]
     Indication: DEPRESSION
     Dosage: 20 MG (20 MG, 1 IN 1 D) ORAL
     Route: 048
     Dates: start: 20070810, end: 20070910
  2. NIMODIPINE [Concomitant]
  3. ALPRAZOLAM [Concomitant]
  4. RANITIDINE HCL [Concomitant]
  5. CHLORTHALIDONE [Concomitant]

REACTIONS (10)
  - DEAFNESS [None]
  - DIARRHOEA [None]
  - DIZZINESS [None]
  - ILL-DEFINED DISORDER [None]
  - LABYRINTHITIS [None]
  - METASTASES TO CENTRAL NERVOUS SYSTEM [None]
  - NAUSEA [None]
  - SOMNOLENCE [None]
  - TINNITUS [None]
  - VOMITING [None]
